FAERS Safety Report 15546712 (Version 1)
Quarter: 2018Q4

REPORT INFORMATION
  Report Type: Spontaneous
  Country: IT (occurrence: IT)
  Receive Date: 20181024
  Receipt Date: 20181024
  Transmission Date: 20190205
  Serious: Yes (Other)
  Sender: FDA-Public Use
  Company Number: IT-SAKK-2018SA293185AA

PATIENT
  Age: 80 Year
  Sex: Male

DRUGS (10)
  1. INSULIN LISPRO [Suspect]
     Active Substance: INSULIN LISPRO
     Indication: TYPE 2 DIABETES MELLITUS
     Dosage: 10 IU, QD
     Route: 058
     Dates: start: 20180101, end: 20180414
  2. KANRENOL [Concomitant]
     Active Substance: CANRENOATE POTASSIUM
  3. BRILIQUE [Concomitant]
     Active Substance: TICAGRELOR
  4. NORVASC [Concomitant]
     Active Substance: AMLODIPINE BESYLATE
  5. LANTUS [Suspect]
     Active Substance: INSULIN GLARGINE
     Indication: TYPE 2 DIABETES MELLITUS
     Dosage: 8 IU, QD
     Route: 058
     Dates: start: 20180101, end: 20180414
  6. TRIATEC [RAMIPRIL] [Concomitant]
  7. LANSOX [Concomitant]
     Active Substance: LANSOPRAZOLE
  8. TORVAST [Concomitant]
     Active Substance: ATORVASTATIN
  9. LASIX [Concomitant]
     Active Substance: FUROSEMIDE
  10. CORLENTOR [Concomitant]
     Active Substance: IVABRADINE HYDROCHLORIDE

REACTIONS (2)
  - Confusional state [Recovering/Resolving]
  - Hypoglycaemia [Recovering/Resolving]

NARRATIVE: CASE EVENT DATE: 20180413
